FAERS Safety Report 7670840-4 (Version None)
Quarter: 2011Q3

REPORT INFORMATION
  Report Type: 
  Country: None (occurrence: None)
  Receive Date: 20110713
  Receipt Date: 20110713
  Transmission Date: 20111222
  Serious: No
  Sender: FDA-Public Use
  Company Number: None

PATIENT
  Age: 85 Year
  Sex: Male
  Weight: 83.7 kg

DRUGS (1)
  1. FESOTERODINE [Suspect]
     Indication: BENIGN PROSTATIC HYPERPLASIA
     Dosage: 4 MG HS PO
     Route: 048
     Dates: start: 20110111, end: 20110518

REACTIONS (1)
  - DRY MOUTH [None]
